FAERS Safety Report 4545393-X (Version None)
Quarter: 2005Q1

REPORT INFORMATION
  Report Type: 
  Country: None (occurrence: None)
  Receive Date: 20050103
  Receipt Date: 20041222
  Transmission Date: 20050727
  Serious: Yes (Other)
  Sender: FDA-Public Use
  Company Number: HQWYE157422DEC04

PATIENT
  Sex: Female

DRUGS (5)
  1. CORDARONE [Suspect]
     Dosage: 1800 MG PER WEEK
     Route: 048
  2. MARCUMAR [Suspect]
     Dosage: 3 MG
     Route: 048
  3. DICLOFENAC (DICLOFENAC) [Concomitant]
  4. IBUPROFEN [Concomitant]
  5. VALDECOXIB [Concomitant]

REACTIONS (3)
  - DRUG INTERACTION [None]
  - INTERNATIONAL NORMALISED RATIO INCREASED [None]
  - PULMONARY TOXICITY [None]
